FAERS Safety Report 5744742-4 (Version None)
Quarter: 2008Q2

REPORT INFORMATION
  Report Type: 
  Country: None (occurrence: None)
  Receive Date: 20080516
  Receipt Date: 20080505
  Transmission Date: 20081010
  Serious: Yes (Other)
  Sender: FDA-Public Use
  Company Number: FABR-1000228

PATIENT
  Age: 59 Year
  Sex: Female
  Weight: 70.3 kg

DRUGS (11)
  1. FABRAZYME [Suspect]
     Indication: FABRY'S DISEASE
     Dosage: 1 MG/KG, Q2W, INTRAVENOUS
     Route: 042
     Dates: start: 20050214
  2. ACETAMINOPHEN [Concomitant]
  3. MECLIZINE [Concomitant]
  4. CLARITIN [Concomitant]
  5. PRILOSEC [Concomitant]
  6. AMLODIPINE [Concomitant]
  7. LISINOPRIL [Concomitant]
  8. GABAPENTIN [Concomitant]
  9. ZOCOR [Concomitant]
  10. LASIX [Concomitant]
  11. PROZAC [Concomitant]

REACTIONS (1)
  - HAEMODIALYSIS [None]
